FAERS Safety Report 14926375 (Version 1)
Quarter: 2018Q2

REPORT INFORMATION
  Report Type: Spontaneous
  Country: DE (occurrence: DE)
  Receive Date: 20180523
  Receipt Date: 20180523
  Transmission Date: 20180711
  Serious: Yes (Other)
  Sender: FDA-Public Use
  Company Number: DE-JNJFOC-20180523111

PATIENT
  Age: 8 Decade
  Sex: Female

DRUGS (4)
  1. IMODIUM [Suspect]
     Active Substance: LOPERAMIDE HYDROCHLORIDE
     Indication: DIARRHOEA
     Route: 048
     Dates: start: 20180514, end: 20180514
  2. OMEPRAZOLE. [Concomitant]
     Active Substance: OMEPRAZOLE
     Route: 065
  3. IMODIUM [Suspect]
     Active Substance: LOPERAMIDE HYDROCHLORIDE
     Route: 048
  4. VARGATEF [Concomitant]
     Active Substance: NINTEDANIB
     Indication: NEOPLASM MALIGNANT
     Route: 065

REACTIONS (4)
  - Dysstasia [None]
  - Polyneuropathy [Recovered/Resolved]
  - Condition aggravated [None]
  - Gait disturbance [None]

NARRATIVE: CASE EVENT DATE: 20180515
